FAERS Safety Report 9580685 (Version 1)
Quarter: 2013Q3

REPORT INFORMATION
  Report Type: Spontaneous
  Country: US (occurrence: None)
  Receive Date: 20130916
  Receipt Date: 20130916
  Transmission Date: 20140515
  Serious: Yes (Other)
  Sender: FDA-Public Use
  Company Number: JPI-P-033833

PATIENT
  Age: 61 Year
  Sex: Female
  Weight: 86.18 kg

DRUGS (6)
  1. XYREM [Suspect]
     Indication: CATAPLEXY
     Dosage: 4.5 GM (2.25 GM, 2 IN 1 D), ORAL
     Route: 048
     Dates: start: 20130309
  2. XYREM [Suspect]
     Indication: SOMNOLENCE
     Dosage: 4.5 GM (2.25 GM, 2 IN 1 D), ORAL
     Route: 048
     Dates: start: 20130309
  3. BUPROPION [Concomitant]
  4. SERTRALINE [Concomitant]
  5. ARIPIPRAZOLE [Concomitant]
  6. AMPHETAMINE, DEXTROAMPHETAMINE MIXED SALTS [Concomitant]

REACTIONS (5)
  - Depression [None]
  - Fibromyalgia [None]
  - Pain [None]
  - Nervousness [None]
  - Fear [None]
